FAERS Safety Report 23927370 (Version 1)
Quarter: 2024Q2

REPORT INFORMATION
  Report Type: Spontaneous
  Country: GB (occurrence: GB)
  Receive Date: 20240531
  Receipt Date: 20240531
  Transmission Date: 20240716
  Serious: Yes (Death, Hospitalization, Other)
  Sender: FDA-Public Use
  Company Number: None

PATIENT
  Age: 53 Year
  Sex: Male
  Weight: 122.8 kg

DRUGS (22)
  1. LOSARTAN POTASSIUM [Suspect]
     Active Substance: LOSARTAN POTASSIUM
     Indication: Hypertension
     Dosage: 50 MILLIGRAM, QD
     Route: 048
     Dates: start: 20201206, end: 20210308
  2. PEMBROLIZUMAB [Suspect]
     Active Substance: PEMBROLIZUMAB
     Indication: Leiomyosarcoma
     Dosage: 200 MILLIGRAM, Q3W
     Route: 042
     Dates: start: 20201117, end: 20210304
  3. PEMBROLIZUMAB [Suspect]
     Active Substance: PEMBROLIZUMAB
     Dosage: 200 MILLIGRAM, Q3W
     Route: 042
     Dates: start: 20210708, end: 20210708
  4. FUROSEMIDE [Suspect]
     Active Substance: FUROSEMIDE
     Indication: Coronary artery disease
     Dosage: 20 MILLIGRAM, QD
     Route: 048
     Dates: start: 20201125
  5. GEMCITABINE [Suspect]
     Active Substance: GEMCITABINE
     Indication: Undifferentiated sarcoma
     Dosage: 2660 MILLIGRAM, ON DAY 1 AND DAY 8
     Route: 042
     Dates: start: 20201117, end: 20201124
  6. GEMCITABINE [Suspect]
     Active Substance: GEMCITABINE
     Indication: Leiomyosarcoma
     Dosage: 2128 MILLIGRAM, ON DAY 1 AND DAY 8
     Route: 042
     Dates: start: 20201117, end: 20201210
  7. GEMCITABINE [Suspect]
     Active Substance: GEMCITABINE
     Dosage: 1710 MILLIGRAM, ON DAY 1
     Route: 042
     Dates: start: 20210304, end: 20210304
  8. METOCLOPRAMIDE [Suspect]
     Active Substance: METOCLOPRAMIDE
     Indication: Nausea
     Dosage: TOTAL DAILY DOSE: 10 MILLIGRAM, PRN
     Route: 048
     Dates: start: 20201206, end: 2021
  9. OXYCODONE [Suspect]
     Active Substance: OXYCODONE\OXYCODONE HYDROCHLORIDE
     Indication: Pelvic pain
     Dosage: TOTAL DAILY DOSE: 5 MILLIGRAM, PRN
     Route: 048
     Dates: start: 20201105
  10. OXYCONTIN [Suspect]
     Active Substance: OXYCODONE HYDROCHLORIDE
     Indication: Pain
     Dosage: 30 MILLIGRAM MANE, 40 MILLIGRAM NOCTE
     Route: 048
     Dates: start: 20201105
  11. BISOPROLOL [Suspect]
     Active Substance: BISOPROLOL\BISOPROLOL FUMARATE
     Indication: Coronary artery disease
     Dosage: 7.5 MILLIGRAM, QD
     Route: 048
     Dates: start: 2017
  12. ASPIRIN [Concomitant]
     Active Substance: ASPIRIN
     Dosage: UNK
     Dates: start: 2017
  13. LANSOPRAZOLE [Concomitant]
     Active Substance: LANSOPRAZOLE
     Dosage: UNK
     Dates: start: 2017
  14. ACETAMINOPHEN [Concomitant]
     Active Substance: ACETAMINOPHEN
     Dosage: UNK
     Dates: start: 2008, end: 20210728
  15. POLYETHYLENE GLYCOL 3350\POTASSIUM CHLORIDE\SODIUM BICARBONATE\SODIUM [Concomitant]
     Active Substance: POLYETHYLENE GLYCOL 3350\POTASSIUM CHLORIDE\SODIUM BICARBONATE\SODIUM CHLORIDE
     Dosage: UNK
     Dates: start: 2008, end: 20210728
  16. ATORVASTATIN [Concomitant]
     Active Substance: ATORVASTATIN
     Dosage: UNK
     Dates: start: 2017
  17. DOCUSATE SODIUM [Concomitant]
     Active Substance: DOCUSATE SODIUM
     Dosage: UNK
     Dates: start: 2008, end: 20201127
  18. LIDOCAINE [Concomitant]
     Active Substance: LIDOCAINE
     Dosage: UNK
     Dates: start: 20201109
  19. GABAPENTIN [Concomitant]
     Active Substance: GABAPENTIN
     Dosage: UNK
     Dates: start: 20201125
  20. LANOLIN\LIGHT MINERAL OIL\PARAFFIN [Concomitant]
     Active Substance: LANOLIN\LIGHT MINERAL OIL\PARAFFIN
     Dosage: UNK
     Dates: start: 20201123, end: 2021
  21. CLOTRIMAZOLE [Concomitant]
     Active Substance: CLOTRIMAZOLE
     Dosage: UNK
     Dates: start: 20201123, end: 20201127
  22. SENOKOT [Concomitant]
     Active Substance: SENNOSIDES
     Dosage: UNK
     Dates: start: 20200223, end: 20210308

REACTIONS (13)
  - Death [Fatal]
  - Pneumonia [Fatal]
  - Skin infection [Fatal]
  - Accident [Fatal]
  - Cardiac failure [Fatal]
  - Dyspnoea [Fatal]
  - Cellulitis [Fatal]
  - Fall [Fatal]
  - Urinary retention [Fatal]
  - Blood bilirubin increased [Fatal]
  - Dizziness [Fatal]
  - Urinary tract infection [Fatal]
  - Constipation [Fatal]

NARRATIVE: CASE EVENT DATE: 20201128
